FAERS Safety Report 21358422 (Version 1)
Quarter: 2022Q3

REPORT INFORMATION
  Report Type: Spontaneous
  Country: JP (occurrence: JP)
  Receive Date: 20220921
  Receipt Date: 20220921
  Transmission Date: 20221027
  Serious: Yes (Other)
  Sender: FDA-Public Use
  Company Number: JP-SUN PHARMACEUTICAL INDUSTRIES LTD-2022R1-355291

PATIENT
  Age: 24 Year
  Sex: Female

DRUGS (3)
  1. ZOLPIDEM [Suspect]
     Active Substance: ZOLPIDEM TARTRATE
     Indication: Insomnia
     Dosage: 5 MILLIGRAM, DAILY
     Route: 065
  2. PEROSPIRONE [Suspect]
     Active Substance: PEROSPIRONE
     Indication: Hallucination, auditory
     Dosage: 4 MILLIGRAM, DAILY
     Route: 065
  3. PEROSPIRONE [Suspect]
     Active Substance: PEROSPIRONE
     Dosage: 12 MILLIGRAM, DAILY
     Route: 065

REACTIONS (3)
  - Therapeutic response decreased [Unknown]
  - Exposure during pregnancy [Unknown]
  - Live birth [Unknown]
